FAERS Safety Report 8261391-7 (Version None)
Quarter: 2012Q2

REPORT INFORMATION
  Report Type: 
  Country: None (occurrence: None)
  Receive Date: 20120402
  Receipt Date: 20120317
  Transmission Date: 20120825
  Serious: Yes (Death, Hospitalization)
  Sender: FDA-Public Use
  Company Number: IPC201203-000107

PATIENT
  Age: 45 Year
  Sex: Female

DRUGS (2)
  1. LABETALOL HCL [Suspect]
     Indication: HYPERTENSION
  2. METOCLOPRAMIDE HYDROCHLORIDE [Suspect]
     Indication: NAUSEA

REACTIONS (23)
  - RESPIRATORY FAILURE [None]
  - AORTIC STENOSIS [None]
  - ELECTROCARDIOGRAM ST-T CHANGE [None]
  - COAGULOPATHY [None]
  - RESPIRATORY ACIDOSIS [None]
  - PHAEOCHROMOCYTOMA CRISIS [None]
  - STRESS CARDIOMYOPATHY [None]
  - CARDIOGENIC SHOCK [None]
  - RENAL FAILURE [None]
  - HYPERHIDROSIS [None]
  - HYPOXIA [None]
  - BLOOD PRESSURE DECREASED [None]
  - CARDIAC ARREST [None]
  - HEPATIC FAILURE [None]
  - GENERAL PHYSICAL HEALTH DETERIORATION [None]
  - AORTIC RUPTURE [None]
  - ADRENAL MASS [None]
  - ELECTROCARDIOGRAM ST SEGMENT ELEVATION [None]
  - MITRAL VALVE INCOMPETENCE [None]
  - SINUS TACHYCARDIA [None]
  - HYPERPYREXIA [None]
  - HYPERTENSION [None]
  - TACHYCARDIA [None]
